FAERS Safety Report 20195547 (Version 1)
Quarter: 2021Q4

REPORT INFORMATION
  Report Type: Report from Study
  Country: US (occurrence: US)
  Receive Date: 20211216
  Receipt Date: 20211216
  Transmission Date: 20220303
  Serious: Yes (Hospitalization, Other)
  Sender: FDA-Public Use
  Company Number: US-OTSUKA-2021_030178

PATIENT
  Age: 75 Year
  Sex: Female
  Weight: 70 kg

DRUGS (2)
  1. ARIPIPRAZOLE [Suspect]
     Active Substance: ARIPIPRAZOLE
     Indication: Schizoaffective disorder
     Dosage: 400 MG INJECTED GLUTEAL
     Route: 030
     Dates: start: 202102
  2. LANTUS [Concomitant]
     Active Substance: INSULIN GLARGINE
     Indication: Type 2 diabetes mellitus
     Dosage: LONG ACTING INSULIN
     Route: 065

REACTIONS (12)
  - Cardiac failure [Unknown]
  - Electrocardiogram QT prolonged [Unknown]
  - Aggression [Recovered/Resolved]
  - Blood glucose increased [Recovered/Resolved]
  - Irregular sleep phase [Unknown]
  - Physical assault [Unknown]
  - Disease progression [Unknown]
  - Anger [Unknown]
  - Irritability [Unknown]
  - Intercepted product administration error [Unknown]
  - Product use in unapproved indication [Unknown]
  - Diet noncompliance [Unknown]

NARRATIVE: CASE EVENT DATE: 20210731
